APPROVED DRUG PRODUCT: BUTALBITAL, ASPIRIN AND CAFFEINE
Active Ingredient: ASPIRIN; BUTALBITAL; CAFFEINE
Strength: 325MG;50MG;40MG
Dosage Form/Route: TABLET;ORAL
Application: A085441 | Product #002
Applicant: IVAX PHARMACEUTICALS INC
Approved: Oct 31, 1984 | RLD: No | RS: No | Type: DISCN